FAERS Safety Report 6013014-5 (Version None)
Quarter: 2008Q4

REPORT INFORMATION
  Report Type: 
  Country: None (occurrence: None)
  Receive Date: 20081219
  Receipt Date: 20081209
  Transmission Date: 20090506
  Serious: Yes (Other)
  Sender: FDA-Public Use
  Company Number: NL-PFIZER INC-2008151340

PATIENT

DRUGS (8)
  1. NEURONTIN [Suspect]
     Indication: EPILEPSY
     Dosage: 800 MG, 3X/DAY
     Route: 048
     Dates: start: 20040101
  2. SYMBICORT [Concomitant]
     Dosage: UNK
  3. ZYRTEC [Concomitant]
     Dosage: UNK
  4. ALL OTHER THERAPEUTIC PRODUCTS [Concomitant]
     Dosage: UNK
  5. CALCIUM [Concomitant]
     Dosage: UNK
  6. VITAMINS [Concomitant]
     Dosage: UNK
  7. SELOKEN [Concomitant]
     Dosage: UNK
  8. PARACETAMOL [Concomitant]
     Dosage: UNK

REACTIONS (3)
  - DYSURIA [None]
  - EPILEPSY [None]
  - SPEECH DISORDER [None]
